FAERS Safety Report 24971391 (Version 1)
Quarter: 2025Q1

REPORT INFORMATION
  Report Type: Spontaneous
  Country: US (occurrence: None)
  Receive Date: 20250214
  Receipt Date: 20250214
  Transmission Date: 20250409
  Serious: Yes (Other)
  Sender: FDA-CTU
  Company Number: None

PATIENT
  Age: 32 Year
  Sex: Male

DRUGS (1)
  1. ADDERALL XR [Suspect]
     Active Substance: AMPHETAMINE ASPARTATE\AMPHETAMINE SULFATE\DEXTROAMPHETAMINE SACCHARATE\DEXTROAMPHETAMINE SULFATE
     Dosage: OTHER QUANTITY : 1 CAPSULE(S);?FREQUENCY : DAILY;?
     Route: 048
     Dates: start: 20240315, end: 20240318

REACTIONS (7)
  - Drug ineffective [None]
  - Brain fog [None]
  - Memory impairment [None]
  - Feeling abnormal [None]
  - Victim of abuse [None]
  - Drug level abnormal [None]
  - Legal problem [None]

NARRATIVE: CASE EVENT DATE: 20240318
